FAERS Safety Report 23382649 (Version 1)
Quarter: 2024Q1

REPORT INFORMATION
  Report Type: Spontaneous
  Country: US (occurrence: US)
  Receive Date: 20240109
  Receipt Date: 20240109
  Transmission Date: 20240410
  Serious: Yes (Hospitalization)
  Sender: FDA-Public Use
  Company Number: US-AFAXYS PHARMA, LLC-2023AFX00025

PATIENT
  Age: 74 Year
  Sex: Female

DRUGS (10)
  1. LIDOCAINE [Suspect]
     Active Substance: LIDOCAINE
     Indication: Epidural injection
     Dosage: 2 ML (FIRST PROCEDURE WITH SUBSEQUENT SYMPTOMS)
     Route: 037
  2. LIDOCAINE [Suspect]
     Active Substance: LIDOCAINE
     Dosage: 2 ML (SECOND PROCEDURE WITH SUBSEQUENT SYMPTOMS)
     Route: 037
  3. IOHEXOL [Suspect]
     Active Substance: IOHEXOL
     Indication: Epidural injection
     Dosage: 1 ML (FIRST PROCEDURE WITH SUBSEQUENT SYMPTOMS)
     Route: 037
  4. IOHEXOL [Suspect]
     Active Substance: IOHEXOL
     Dosage: 1 ML (SECOND PROCEDURE WITH SUBSEQUENT SYMPTOMS)
     Route: 037
  5. DEPO-MEDROL [Suspect]
     Active Substance: METHYLPREDNISOLONE ACETATE
     Indication: Epidural injection
     Dosage: 80 MG, 2 ML (FIRST PROCEDURE WITH SUBSEQUENT SYMPTOMS)
     Route: 037
  6. DEPO-MEDROL [Suspect]
     Active Substance: METHYLPREDNISOLONE ACETATE
     Dosage: 80 MG, 2 ML (SECOND PROCEDURE WITH SUBSEQUENT SYMPTOMS)
     Route: 037
  7. UNSPECIFIED INGREDIENT [Suspect]
     Active Substance: UNSPECIFIED INGREDIENT
     Indication: Epidural injection
     Dosage: (FIRST PROCEDURE WITH SUBSEQUENT SYMPTOMS)
     Route: 037
  8. UNSPECIFIED INGREDIENT [Suspect]
     Active Substance: UNSPECIFIED INGREDIENT
     Dosage: (SECOND PROCEDURE WITH SUBSEQUENT SYMPTOMS)
     Route: 037
  9. SODIUM CHLORIDE [Concomitant]
     Active Substance: SODIUM CHLORIDE
     Indication: Epidural injection
     Dosage: 2 ML (FIRST PROCEDURE WITH SUBSEQUENT SYMPTOMS)
     Route: 037
  10. SODIUM CHLORIDE [Concomitant]
     Active Substance: SODIUM CHLORIDE
     Dosage: 2 ML (SECOND PROCEDURE WITH SUBSEQUENT SYMPTOMS)
     Route: 037

REACTIONS (2)
  - Meningitis chemical [Recovered/Resolved]
  - Product administration error [Recovered/Resolved]
